FAERS Safety Report 13265611 (Version 5)
Quarter: 2017Q4

REPORT INFORMATION
  Report Type: Report from Study
  Country: IT (occurrence: IT)
  Receive Date: 20170223
  Receipt Date: 20171006
  Transmission Date: 20180320
  Serious: Yes (Hospitalization, Other)
  Sender: FDA-Public Use
  Company Number: PHHY2017IT022015

PATIENT
  Age: 14 Year
  Sex: Male
  Weight: 74 kg

DRUGS (14)
  1. BACTRIM [Concomitant]
     Active Substance: SULFAMETHOXAZOLE\TRIMETHOPRIM
     Indication: ANTIFUNGAL PROPHYLAXIS
     Dosage: 2 DF, QW2 (TWICE WEEKLY)
     Route: 048
     Dates: start: 20140521, end: 20161227
  2. DEURSIL [Concomitant]
     Active Substance: URSODIOL
     Dosage: 2 DF, QD (300 MG)
     Route: 048
     Dates: start: 20141102, end: 20141110
  3. KIDROLASE [Concomitant]
     Active Substance: ASPARAGINASE
     Indication: CHEMOTHERAPY
     Dosage: 47250 IU, QD
     Route: 042
     Dates: start: 20141029, end: 20141029
  4. MTX [Concomitant]
     Active Substance: METHOTREXATE SODIUM
     Indication: CHEMOTHERAPY
     Dosage: 12 MG, QD
     Route: 030
  5. DEXAMETHASONE. [Concomitant]
     Active Substance: DEXAMETHASONE
     Dosage: 18 MG, QD
     Route: 048
     Dates: start: 20141113, end: 20141113
  6. DEURSIL [Concomitant]
     Active Substance: URSODIOL
     Indication: HYPERTRANSAMINASAEMIA
     Dosage: 2 DF, QD
     Route: 048
     Dates: start: 20140626, end: 20140713
  7. ENAPREN [Concomitant]
     Active Substance: ENALAPRIL MALEATE
     Indication: HYPERTENSION
     Dosage: 1 DF, BID
     Route: 048
     Dates: start: 20140528, end: 20140829
  8. CYCLOPHOSPHAMIDE. [Concomitant]
     Active Substance: CYCLOPHOSPHAMIDE
     Indication: PRODUCT USED FOR UNKNOWN INDICATION
     Dosage: 2000 MG, UNK
     Route: 042
     Dates: start: 20140816, end: 20140816
  9. DEXAMETHASONE. [Concomitant]
     Active Substance: DEXAMETHASONE
     Indication: CHEMOTHERAPY
     Dosage: 38 MG, QD
     Route: 042
     Dates: start: 20141025, end: 20141029
  10. MYCOSTATIN [Concomitant]
     Active Substance: NYSTATIN
     Indication: PROPHYLAXIS
     Dosage: 5 ML, TID (3 DIE)
     Route: 048
     Dates: start: 20140521, end: 20161227
  11. ETOPOSIDE. [Concomitant]
     Active Substance: ETOPOSIDE
     Indication: CHEMOTHERAPY
     Dosage: 189 MG, QD
     Route: 042
     Dates: start: 20141027, end: 20141029
  12. GLIVEC [Suspect]
     Active Substance: IMATINIB MESYLATE
     Indication: PRODUCT USED FOR UNKNOWN INDICATION
     Dosage: 500 MG/M2, UNK
     Route: 065
     Dates: start: 20140606, end: 20170404
  13. CYTARABINE. [Concomitant]
     Active Substance: CYTARABINE
     Indication: CHEMOTHERAPY
     Dosage: 3780 MG, QD
     Route: 042
     Dates: start: 20141025, end: 20141026
  14. ANTRA [Concomitant]
     Active Substance: OMEPRAZOLE
     Indication: IMPAIRED GASTRIC EMPTYING
     Dosage: 1 DF, BID
     Route: 048
     Dates: start: 20140521, end: 20140826

REACTIONS (15)
  - Erythema [Recovered/Resolved]
  - Anaemia [Recovered/Resolved]
  - Thrombocytopenia [Recovered/Resolved]
  - Thrombocytopenia [Recovered/Resolved]
  - Rectal haemorrhage [Recovered/Resolved]
  - Hyperglycaemia [Recovered/Resolved]
  - Febrile neutropenia [Unknown]
  - Neutropenia [Recovered/Resolved]
  - Pyrexia [Recovered/Resolved]
  - Haemorrhoids [Recovered/Resolved]
  - Diarrhoea [Recovered/Resolved]
  - Vomiting [Recovered/Resolved]
  - Neutropenia [Recovered/Resolved]
  - Aplasia [Recovered/Resolved]
  - Haemorrhage [Recovered/Resolved]

NARRATIVE: CASE EVENT DATE: 20140701
